FAERS Safety Report 15298970 (Version 3)
Quarter: 2018Q3

REPORT INFORMATION
  Report Type: Spontaneous
  Country: GB (occurrence: GB)
  Receive Date: 20180821
  Receipt Date: 20180914
  Transmission Date: 20181010
  Serious: Yes (Other)
  Sender: FDA-Public Use
  Company Number: GB-SUN PHARMACEUTICAL INDUSTRIES LTD-2018RR-181252

PATIENT
  Sex: Female

DRUGS (1)
  1. SERTRALINE 50 MG FILM?COATED TABLETS [Suspect]
     Active Substance: SERTRALINE HYDROCHLORIDE
     Indication: PRODUCT USED FOR UNKNOWN INDICATION
     Dosage: UNK
     Route: 065

REACTIONS (6)
  - Panic attack [Recovered/Resolved]
  - Withdrawal syndrome [Recovered/Resolved]
  - Abnormal dreams [Recovered/Resolved]
  - Drug ineffective [Unknown]
  - Product substitution issue [Unknown]
  - Anxiety [Recovered/Resolved]
